FAERS Safety Report 7774691-1 (Version None)
Quarter: 2011Q3

REPORT INFORMATION
  Report Type: 
  Country: None (occurrence: None)
  Receive Date: 20110923
  Receipt Date: 20110920
  Transmission Date: 20111222
  Serious: Yes (Death, Hospitalization, Other)
  Sender: FDA-Public Use
  Company Number: CA-ROXANE LABORATORIES, INC.-2011-RO-01316RO

PATIENT
  Age: 50 Year
  Sex: Female

DRUGS (7)
  1. CAPECITABINE [Suspect]
     Indication: BREAST CANCER METASTATIC
  2. CYCLOPHOSPHAMIDE [Suspect]
     Indication: BREAST CANCER
  3. DOXORUBICIN HCL [Suspect]
     Indication: BREAST CANCER
  4. TAMOXIFEN CITRATE [Suspect]
     Indication: BREAST CANCER
  5. EXEMESTANE [Suspect]
     Indication: BREAST CANCER METASTATIC
  6. PAMIDRONATE DISODIUM [Suspect]
     Indication: BREAST CANCER METASTATIC
  7. LETROZOLE [Suspect]
     Indication: ADJUVANT THERAPY

REACTIONS (7)
  - ADENOMA BENIGN [None]
  - ALOPECIA [None]
  - METASTASES TO MENINGES [None]
  - DEATH [None]
  - BREAST CANCER METASTATIC [None]
  - INAPPROPRIATE ANTIDIURETIC HORMONE SECRETION [None]
  - FOLLICULITIS [None]
